FAERS Safety Report 25752707 (Version 1)
Quarter: 2025Q3

REPORT INFORMATION
  Report Type: Spontaneous
  Country: JP (occurrence: JP)
  Receive Date: 20250902
  Receipt Date: 20250902
  Transmission Date: 20251020
  Serious: Yes (Hospitalization)
  Sender: PFIZER
  Company Number: JP-PFIZER INC-PV202500103910

PATIENT
  Age: 89 Year
  Sex: Male

DRUGS (4)
  1. IBRANCE [Suspect]
     Active Substance: PALBOCICLIB
     Dosage: 125 MG, DAILY
     Route: 048
     Dates: start: 20250806, end: 20250811
  2. LETROZOLE [Concomitant]
     Active Substance: LETROZOLE
     Indication: Breast cancer recurrent
  3. LEUPLIN [Concomitant]
     Active Substance: LEUPROLIDE ACETATE
     Indication: Breast cancer recurrent
  4. BICALUTAMIDE [Concomitant]
     Active Substance: BICALUTAMIDE
     Indication: Breast cancer recurrent

REACTIONS (3)
  - Neutropenia [Unknown]
  - Pyrexia [Unknown]
  - Eczema [Unknown]

NARRATIVE: CASE EVENT DATE: 20250820
